FAERS Safety Report 6035719-2 (Version None)
Quarter: 2009Q1

REPORT INFORMATION
  Report Type: 
  Country: None (occurrence: None)
  Receive Date: 20090113
  Receipt Date: 20090107
  Transmission Date: 20090719
  Serious: Yes (Death)
  Sender: FDA-Public Use
  Company Number: JP-ABBOTT-08P-087-0489956-00

PATIENT
  Sex: Female

DRUGS (2)
  1. SEVOFLURANE [Suspect]
     Indication: ANAESTHESIA
  2. SEVOFLURANE [Suspect]
     Indication: SPINAL OPERATION

REACTIONS (3)
  - HAEMORRHAGIC DIATHESIS [None]
  - LIVER DISORDER [None]
  - RIB FRACTURE [None]
